FAERS Safety Report 22598111 (Version 2)
Quarter: 2023Q2

REPORT INFORMATION
  Report Type: Spontaneous
  Country: US (occurrence: None)
  Receive Date: 20230614
  Receipt Date: 20230614
  Transmission Date: 20230722
  Serious: No
  Sender: FDA-Public Use
  Company Number: US-MDD US Operations-MDD202211-003750

PATIENT
  Sex: Male

DRUGS (4)
  1. APOKYN [Suspect]
     Active Substance: APOMORPHINE HYDROCHLORIDE
     Indication: Parkinson^s disease
     Route: 058
     Dates: start: 20211101
  2. NUPLAZID [Concomitant]
     Active Substance: PIMAVANSERIN TARTRATE
     Dosage: NOT PROVIDED
  3. RYTARY [Concomitant]
     Active Substance: CARBIDOPA\LEVODOPA
     Dosage: NOT PROVIDED
  4. SINEMET [Concomitant]
     Active Substance: CARBIDOPA\LEVODOPA
     Dosage: NOT PROVIDED

REACTIONS (2)
  - Libido increased [Recovered/Resolved]
  - Priapism [Recovered/Resolved]

NARRATIVE: CASE EVENT DATE: 20221103
